FAERS Safety Report 13761277 (Version 2)
Quarter: 2017Q3

REPORT INFORMATION
  Report Type: Other
  Country: US (occurrence: US)
  Receive Date: 20170717
  Receipt Date: 20170801
  Transmission Date: 20171127
  Serious: Yes (Other)
  Sender: FDA-Public Use
  Company Number: US-ACORDA-ACO_139929_2017

PATIENT
  Age: 52 Year
  Sex: Female

DRUGS (2)
  1. AMPYRA [Suspect]
     Active Substance: DALFAMPRIDINE
     Indication: GAIT DISTURBANCE
     Dosage: 10 MG, Q 12 HRS
     Route: 048
     Dates: end: 201706
  2. AMPYRA [Suspect]
     Active Substance: DALFAMPRIDINE
     Dosage: 10 MG, QD
     Route: 048
     Dates: start: 201706

REACTIONS (6)
  - Drug ineffective [Unknown]
  - Feeling abnormal [Unknown]
  - Inappropriate schedule of drug administration [Unknown]
  - Therapy cessation [Unknown]
  - Contraindicated product administered [Unknown]
  - Seizure [Unknown]

NARRATIVE: CASE EVENT DATE: 201611
